FAERS Safety Report 23245328 (Version 1)
Quarter: 2023Q4

REPORT INFORMATION
  Report Type: Spontaneous
  Country: US (occurrence: US)
  Receive Date: 20231130
  Receipt Date: 20231130
  Transmission Date: 20240109
  Serious: Yes (Other)
  Sender: FDA-Public Use
  Company Number: US-AMGEN-USASP2023210561

PATIENT
  Age: 65 Year
  Sex: Female

DRUGS (2)
  1. BEVACIZUMAB [Suspect]
     Active Substance: BEVACIZUMAB
     Indication: Endometrial cancer metastatic
     Dosage: EIGHT CYCLES
     Route: 065
  2. DOXORUBICIN [Concomitant]
     Active Substance: DOXORUBICIN
     Indication: Endometrial cancer metastatic
     Dosage: EIGHT CYCLES
     Route: 065

REACTIONS (3)
  - Acute kidney injury [Unknown]
  - Renal-limited thrombotic microangiopathy [Unknown]
  - End stage renal disease [Unknown]
